FAERS Safety Report 6857128-6 (Version None)
Quarter: 2010Q3

REPORT INFORMATION
  Report Type: 
  Country: None (occurrence: None)
  Receive Date: 20100719
  Receipt Date: 20100716
  Transmission Date: 20110219
  Serious: Yes (Hospitalization)
  Sender: FDA-Public Use
  Company Number: B0665709A

PATIENT
  Age: 57 Year
  Sex: Male

DRUGS (2)
  1. ROPINIROLE [Suspect]
  2. ABILIFY [Suspect]

REACTIONS (3)
  - ASTHENIA [None]
  - DYSPHAGIA [None]
  - DYSPNOEA [None]
